FAERS Safety Report 17762996 (Version 1)
Quarter: 2020Q2

REPORT INFORMATION
  Report Type: Report from Study
  Country: US (occurrence: US)
  Receive Date: 20200508
  Receipt Date: 20200508
  Transmission Date: 20200714
  Serious: Yes (Hospitalization, Other)
  Sender: FDA-Public Use
  Company Number: US-BRISTOL-MYERS SQUIBB COMPANY-BMS-2020-036146

PATIENT
  Age: 12 Year
  Sex: Male
  Weight: 32 kg

DRUGS (4)
  1. DOXORUBICIN HYDROCHLORIDE. [Suspect]
     Active Substance: DOXORUBICIN HYDROCHLORIDE
     Indication: HODGKIN^S DISEASE
     Dosage: 56 MILLIGRAM
     Route: 042
     Dates: start: 20191228, end: 20200403
  2. VINBLASTINE SULFATE. [Suspect]
     Active Substance: VINBLASTINE SULFATE
     Indication: HODGKIN^S DISEASE
     Dosage: 13.6 MILLIGRAM
     Route: 042
     Dates: start: 20191228, end: 20200403
  3. DACARBAZINE. [Suspect]
     Active Substance: DACARBAZINE
     Indication: HODGKIN^S DISEASE
     Dosage: 848 MILLIGRAM
     Route: 042
     Dates: start: 20191228, end: 20200403
  4. NIVOLUMAB [Suspect]
     Active Substance: NIVOLUMAB
     Indication: HODGKIN^S DISEASE
     Dosage: 190 MILLIGRAM
     Route: 042
     Dates: start: 20191228, end: 20200403

REACTIONS (2)
  - Neutrophil count decreased [Recovered/Resolved]
  - Febrile neutropenia [Recovered/Resolved]

NARRATIVE: CASE EVENT DATE: 20200416
